FAERS Safety Report 7578766-1 (Version None)
Quarter: 2011Q2

REPORT INFORMATION
  Report Type: 
  Country: None (occurrence: None)
  Receive Date: 20110628
  Receipt Date: 20110621
  Transmission Date: 20111010
  Serious: No
  Sender: FDA-Public Use
  Company Number: US-PFIZER INC-2011137155

PATIENT
  Sex: Male
  Weight: 90.703 kg

DRUGS (6)
  1. PROTONIX [Concomitant]
     Dosage: UNK
  2. TRAMADOL [Concomitant]
     Dosage: 50 MG, UNK
     Route: 048
  3. LISINOPRIL [Concomitant]
     Dosage: 5 MG, UNK
     Route: 048
  4. FERROUS SULFATE [Concomitant]
     Route: 048
  5. PRAVASTATIN [Concomitant]
     Dosage: 20 MG, UNK
     Route: 048
  6. SUTENT [Suspect]
     Dosage: 37.5MG, 1X/DAY (25MG AND 12.5 MG EVERY DAY)
     Route: 048

REACTIONS (2)
  - VOMITING [None]
  - NAUSEA [None]
